FAERS Safety Report 8133824 (Version 2)
Quarter: 2013Q1

REPORT INFORMATION
  Report Type: Spontaneous
  Country: US (occurrence: US)
  Receive Date: 20110913
  Receipt Date: 20130122
  Transmission Date: 20140127
  Serious: Yes (Hospitalization)
  Sender: FDA-Public Use
  Company Number: US-GLAXOSMITHKLINE-A0897705A

PATIENT
  Age: 73 Year
  Sex: Male
  Weight: 77.7 kg

DRUGS (11)
  1. AVANDIA [Suspect]
     Indication: DIABETES MELLITUS
     Dosage: 2MG TWICE PER DAY
     Route: 048
     Dates: start: 200601, end: 200604
  2. AVANDARYL [Suspect]
     Indication: DIABETES MELLITUS
     Route: 048
     Dates: start: 200605, end: 200610
  3. AVANDAMET [Suspect]
     Indication: TYPE 2 DIABETES MELLITUS
     Route: 048
     Dates: start: 200611
  4. METFORMIN [Concomitant]
  5. MICARDIS [Concomitant]
  6. SYNTHROID [Concomitant]
  7. PROTONIX [Concomitant]
  8. FLOMAX [Concomitant]
  9. AMARYL [Concomitant]
  10. HYZAAR [Concomitant]
  11. CRESTOR [Concomitant]

REACTIONS (4)
  - Ischaemic cardiomyopathy [Not Recovered/Not Resolved]
  - Coronary artery disease [Unknown]
  - Chest pain [Unknown]
  - Implantable defibrillator insertion [Unknown]
